FAERS Safety Report 13778648 (Version 2)
Quarter: 2017Q3

REPORT INFORMATION
  Report Type: Report from Study
  Country: US (occurrence: BR)
  Receive Date: 20170721
  Receipt Date: 20170829
  Transmission Date: 20171127
  Serious: Yes (Death)
  Sender: FDA-Public Use
  Company Number: US-SUNOVION-2017SUN003151

PATIENT
  Age: 73 Year
  Sex: Male

DRUGS (1)
  1. GLYCOPYRROLATE. [Suspect]
     Active Substance: GLYCOPYRROLATE
     Indication: PRODUCT USED FOR UNKNOWN INDICATION
     Dosage: 0.05 MG, UNK
     Route: 055
     Dates: start: 201611

REACTIONS (5)
  - Metastases to central nervous system [Fatal]
  - Lung neoplasm malignant [Fatal]
  - Metastasis [Fatal]
  - Multiple organ dysfunction syndrome [Fatal]
  - Metastases to the mediastinum [Fatal]
